FAERS Safety Report 20576557 (Version 1)
Quarter: 2022Q1

REPORT INFORMATION
  Report Type: Other
  Country: ES (occurrence: None)
  Receive Date: 20220310
  Receipt Date: 20220310
  Transmission Date: 20220423
  Serious: Yes (Hospitalization, Other)
  Sender: FDA-Public Use
  Company Number: ES-Neopharma Inc-000350

PATIENT
  Age: 62 Year
  Sex: Female

DRUGS (3)
  1. AMOXICILLIN [Suspect]
     Active Substance: AMOXICILLIN
     Indication: Pyrexia
  2. AMOXICILLIN [Suspect]
     Active Substance: AMOXICILLIN
     Indication: Odynophagia
  3. AMOXICILLIN [Suspect]
     Active Substance: AMOXICILLIN
     Indication: Lymphadenopathy

REACTIONS (2)
  - Linear IgA disease [Recovered/Resolved]
  - Meningitis aseptic [Recovered/Resolved]
